FAERS Safety Report 5456435-1 (Version None)
Quarter: 2007Q3

REPORT INFORMATION
  Report Type: 
  Country: None (occurrence: None)
  Receive Date: 20070918
  Receipt Date: 20070904
  Transmission Date: 20080115
  Serious: Yes (Other)
  Sender: FDA-Public Use
  Company Number: JP-PURDUE-MAG_2007_0000577

PATIENT
  Age: 39 Year
  Sex: Female

DRUGS (7)
  1. UNIPHYLLIN CONTINUS TABLETS [Suspect]
     Indication: ASTHMA
     Dosage: 400 MG, DAILY
     Route: 048
     Dates: start: 20070502, end: 20070510
  2. MONTELUKAST SODIUM [Concomitant]
     Indication: ASTHMA
     Route: 048
     Dates: start: 20070801
  3. PREDNISOLONE [Concomitant]
     Indication: INTERSTITIAL LUNG DISEASE
     Dosage: 70 MG, DAILY
     Route: 048
     Dates: start: 20070801
  4. ADRENOCORTICOTROPHIC HORMONE [Concomitant]
     Indication: INTERSTITIAL LUNG DISEASE
     Dosage: 1000 MG, DAILY
     Route: 042
     Dates: start: 20070801, end: 20070801
  5. FAMOTIDINE [Concomitant]
     Indication: DRUG USE FOR UNKNOWN INDICATION
     Route: 048
  6. POVIDONE IODINE [Concomitant]
     Indication: DRUG USE FOR UNKNOWN INDICATION
     Dosage: UNK, PRN
     Route: 065
  7. MEROPENEM [Concomitant]
     Indication: DRUG USE FOR UNKNOWN INDICATION
     Dosage: 1 GRAM, UNK
     Route: 042

REACTIONS (2)
  - BLOOD CREATININE INCREASED [None]
  - MYALGIA [None]
